FAERS Safety Report 14122916 (Version 1)
Quarter: 2017Q4

REPORT INFORMATION
  Report Type: Spontaneous
  Country: US (occurrence: US)
  Receive Date: 20171025
  Receipt Date: 20171025
  Transmission Date: 20180321
  Serious: Yes (Other)
  Sender: FDA-Public Use
  Company Number: PHEH2017US033566

PATIENT
  Sex: Female
  Weight: 40.37 kg

DRUGS (1)
  1. ZOFRAN [Suspect]
     Active Substance: ONDANSETRON HYDROCHLORIDE
     Indication: NAUSEA
     Route: 065

REACTIONS (6)
  - Nervous system disorder [Unknown]
  - Gait inability [Unknown]
  - Drug hypersensitivity [Unknown]
  - Speech disorder [Unknown]
  - Delusion [Unknown]
  - Thinking abnormal [Unknown]
